FAERS Safety Report 6060789-5 (Version None)
Quarter: 2009Q1

REPORT INFORMATION
  Report Type: 
  Country: None (occurrence: None)
  Receive Date: 20090202
  Receipt Date: 20090127
  Transmission Date: 20090719
  Serious: Yes (Hospitalization, Other)
  Sender: FDA-Public Use
  Company Number: PHBS2009IT00655

PATIENT
  Age: 18 Year
  Sex: Male

DRUGS (5)
  1. BASILIXIMAB [Suspect]
     Indication: RENAL TRANSPLANT
  2. TACROLIMUS [Suspect]
     Indication: RENAL TRANSPLANT
  3. MYCOPHENOLATE MOFETIL [Suspect]
     Indication: RENAL TRANSPLANT
  4. STEROIDS NOS [Suspect]
     Indication: RENAL TRANSPLANT
  5. INSULIN [Suspect]
     Indication: TYPE 1 DIABETES MELLITUS

REACTIONS (8)
  - BLOOD ALBUMIN DECREASED [None]
  - BLOOD CREATININE INCREASED [None]
  - GLOMERULOSCLEROSIS [None]
  - HYPERTENSION [None]
  - OEDEMA PERIPHERAL [None]
  - PROTEINURIA [None]
  - TYPE 1 DIABETES MELLITUS [None]
  - URINE PROTEIN/CREATININE RATIO INCREASED [None]
